FAERS Safety Report 17657627 (Version 1)
Quarter: 2020Q2

REPORT INFORMATION
  Report Type: Spontaneous
  Country: FR (occurrence: FR)
  Receive Date: 20200411
  Receipt Date: 20200411
  Transmission Date: 20200713
  Serious: Yes (Other)
  Sender: FDA-Public Use
  Company Number: FR-ABBVIE-20K-056-3359357-00

PATIENT
  Sex: Female
  Weight: 92 kg

DRUGS (3)
  1. STELARA [Suspect]
     Active Substance: USTEKINUMAB
     Indication: PRODUCT USED FOR UNKNOWN INDICATION
     Route: 058
     Dates: start: 201906
  2. HUMIRA [Suspect]
     Active Substance: ADALIMUMAB
     Indication: CROHN^S DISEASE
     Dosage: 1 DOSAGE FORM
     Route: 058
     Dates: start: 20151006
  3. HUMIRA [Suspect]
     Active Substance: ADALIMUMAB
     Dosage: DOSE INCREASED
     Route: 058

REACTIONS (7)
  - Angular cheilitis [Recovered/Resolved]
  - Staphylococcal infection [Unknown]
  - Ear injury [Recovering/Resolving]
  - Folliculitis [Not Recovered/Not Resolved]
  - Erythema [Not Recovered/Not Resolved]
  - Hidradenitis [Recovering/Resolving]
  - Rhinalgia [Recovered/Resolved]

NARRATIVE: CASE EVENT DATE: 201511
